FAERS Safety Report 5133481-9 (Version None)
Quarter: 2006Q4

REPORT INFORMATION
  Report Type: 
  Country: None (occurrence: None)
  Receive Date: 20061024
  Receipt Date: 20060608
  Transmission Date: 20070319
  Serious: Yes (Other)
  Sender: FDA-Public Use
  Company Number: PHEH2006US07518

PATIENT
  Age: 50 Year
  Sex: Male

DRUGS (12)
  1. GENTEAL MODERATE LUBRICANT EYE DROPS (NVO) [Suspect]
     Indication: DRY EYE
     Dosage: UNK, UNK
  2. DIOVAN [Concomitant]
  3. MIRTAZAPINE [Concomitant]
  4. FLUOXETINE [Concomitant]
  5. LITHIUM CARBONATE [Concomitant]
  6. GLYBURIDE [Concomitant]
  7. SINGULAIR [Concomitant]
  8. ABILIFY [Concomitant]
  9. TRICOR [Concomitant]
  10. INDOMETHACIN [Concomitant]
  11. DIAZEPAM [Concomitant]
  12. GENTEAL GEL (NVO) [Suspect]
     Indication: DRY EYE
     Dosage: UNK, PRN

REACTIONS (3)
  - BLINDNESS TRANSIENT [None]
  - EYE IRRITATION [None]
  - EYELID DISORDER [None]
